FAERS Safety Report 14081301 (Version 1)
Quarter: 2017Q4

REPORT INFORMATION
  Report Type: Spontaneous
  Country: US (occurrence: US)
  Receive Date: 20171012
  Receipt Date: 20171012
  Transmission Date: 20180321
  Serious: No
  Sender: FDA-Public Use
  Company Number: US-009507513-1709USA014981

PATIENT
  Age: 3 Year

DRUGS (1)
  1. PROVENTIL [Suspect]
     Active Substance: ALBUTEROL
     Indication: ASTHMA
     Dosage: UNK
     Route: 055

REACTIONS (4)
  - Wrong technique in product usage process [Unknown]
  - Underdose [Unknown]
  - Drug administered to patient of inappropriate age [Unknown]
  - No adverse event [Unknown]
